FAERS Safety Report 6692329-1 (Version None)
Quarter: 2010Q2

REPORT INFORMATION
  Report Type: 
  Country: None (occurrence: None)
  Receive Date: 20100422
  Receipt Date: 20100408
  Transmission Date: 20101027
  Serious: Yes (Death, Hospitalization)
  Sender: FDA-Public Use
  Company Number: BR-GENZYME-CERZ-1001172

PATIENT

DRUGS (1)
  1. CEREZYME [Suspect]
     Indication: GAUCHER'S DISEASE
     Dosage: UNK
     Route: 042
     Dates: start: 20020913, end: 20100218

REACTIONS (7)
  - ASPIRATION BRONCHIAL [None]
  - DYSPHAGIA [None]
  - HYPOXIA [None]
  - LUNG DISORDER [None]
  - LUNG INFECTION [None]
  - MOTOR DYSFUNCTION [None]
  - MUSCLE SPASTICITY [None]
